FAERS Safety Report 8990408 (Version 1)
Quarter: 2012Q4

REPORT INFORMATION
  Report Type: Report from Study
  Country: BE (occurrence: BE)
  Receive Date: 20121228
  Receipt Date: 20121228
  Transmission Date: 20130627
  Serious: Yes (Hospitalization)
  Sender: FDA-Public Use
  Company Number: BE-BAXTER-2012BAX028808

PATIENT
  Age: 58 Year
  Sex: Male
  Weight: 66 kg

DRUGS (18)
  1. ENDOXAN [Suspect]
     Indication: DIFFUSE LARGE B-CELL LYMPHOMA
     Route: 042
     Dates: start: 20101230
  2. ENDOXAN [Suspect]
     Route: 042
     Dates: start: 20110203
  3. ENDOXAN [Suspect]
     Route: 042
     Dates: start: 20110303
  4. RITUXIMAB [Suspect]
     Indication: DIFFUSE LARGE B-CELL LYMPHOMA
     Route: 042
     Dates: start: 20101230
  5. RITUXIMAB [Suspect]
     Route: 042
     Dates: start: 20110203
  6. RITUXIMAB [Suspect]
     Route: 042
     Dates: start: 20110303
  7. PREDNISONE [Suspect]
     Indication: DIFFUSE LARGE B-CELL LYMPHOMA
     Route: 048
     Dates: start: 20101230
  8. PREDNISONE [Suspect]
     Route: 048
     Dates: start: 20110203
  9. PREDNISONE [Suspect]
     Route: 048
     Dates: start: 20110303
  10. DOXORUBICIN [Suspect]
     Indication: DIFFUSE LARGE B-CELL LYMPHOMA
     Route: 042
     Dates: start: 20101230
  11. DOXORUBICIN [Suspect]
     Route: 042
     Dates: start: 20110203
  12. DOXORUBICIN [Suspect]
     Route: 042
     Dates: start: 20110303
  13. VINCRISTINE [Suspect]
     Indication: DIFFUSE LARGE B-CELL LYMPHOMA
     Route: 042
     Dates: start: 20101230
  14. VINCRISTINE [Suspect]
     Route: 042
     Dates: start: 20110203
  15. VINCRISTINE [Suspect]
     Route: 042
     Dates: start: 20110303
  16. G-CSF [Suspect]
     Indication: DIFFUSE LARGE B-CELL LYMPHOMA
     Route: 058
     Dates: start: 20101231
  17. G-CSF [Suspect]
     Route: 058
     Dates: start: 20110207
  18. G-CSF [Suspect]
     Route: 058
     Dates: start: 20110303

REACTIONS (4)
  - Pulmonary embolism [Recovered/Resolved]
  - Pneumonia [Recovered/Resolved]
  - Empyema [Recovered/Resolved]
  - Febrile neutropenia [Not Recovered/Not Resolved]
